FAERS Safety Report 9740783 (Version 2)
Quarter: 2013Q4

REPORT INFORMATION
  Report Type: Spontaneous
  Country: TR (occurrence: TR)
  Receive Date: 20131209
  Receipt Date: 20131216
  Transmission Date: 20140711
  Serious: Yes (Other)
  Sender: FDA-Public Use
  Company Number: TR-PFIZER INC-2013342905

PATIENT
  Sex: 0

DRUGS (3)
  1. SILDENAFIL CITRATE [Suspect]
     Dosage: UNK
  2. LEVITRA [Suspect]
     Dosage: UNK
  3. TADALAFIL [Suspect]
     Dosage: UNK

REACTIONS (1)
  - Blindness [Unknown]
